FAERS Safety Report 17797949 (Version 1)
Quarter: 2020Q2

REPORT INFORMATION
  Report Type: Spontaneous
  Country: US (occurrence: US)
  Receive Date: 20200518
  Receipt Date: 20200518
  Transmission Date: 20200714
  Serious: Yes (Hospitalization, Other)
  Sender: FDA-Public Use
  Company Number: US-PFIZER INC-2020193938

PATIENT
  Age: 70 Year
  Sex: Female
  Weight: 110.68 kg

DRUGS (1)
  1. XELJANZ [Suspect]
     Active Substance: TOFACITINIB CITRATE
     Indication: RHEUMATOID ARTHRITIS
     Dosage: 10 MG, 2X/DAY
     Route: 048

REACTIONS (4)
  - Influenza [Unknown]
  - Off label use [Unknown]
  - Rheumatoid arthritis [Unknown]
  - Heart rate increased [Unknown]

NARRATIVE: CASE EVENT DATE: 201902
